FAERS Safety Report 11983587 (Version 2)
Quarter: 2016Q2

REPORT INFORMATION
  Report Type: Spontaneous
  Country: US (occurrence: US)
  Receive Date: 20160201
  Receipt Date: 20160427
  Transmission Date: 20160815
  Serious: Yes (Hospitalization, Other)
  Sender: FDA-Public Use
  Company Number: US-PFIZER INC-2016052188

PATIENT
  Age: 57 Year
  Sex: Male

DRUGS (7)
  1. CLOTRIMAZOLE. [Concomitant]
     Active Substance: CLOTRIMAZOLE
     Indication: ONYCHOMYCOSIS
     Dosage: UNK
     Dates: start: 2009
  2. MAGNESIUM OXIDE. [Concomitant]
     Active Substance: MAGNESIUM OXIDE
     Indication: VITAMIN SUPPLEMENTATION
     Dosage: UNK
     Dates: start: 2007
  3. TESTOSTERONE CYPIONATE. [Suspect]
     Active Substance: TESTOSTERONE CYPIONATE
     Indication: HORMONE REPLACEMENT THERAPY
     Dosage: UNK, TWICE A MONTH
     Dates: start: 201006, end: 201401
  4. ANDRODERM [Suspect]
     Active Substance: TESTOSTERONE
     Indication: HORMONE REPLACEMENT THERAPY
     Dosage: UNK, DAILY
     Dates: start: 201004, end: 201006
  5. DEPO-TESTOSTERONE [Suspect]
     Active Substance: TESTOSTERONE CYPIONATE
     Indication: HORMONE REPLACEMENT THERAPY
     Dosage: UNK
     Dates: start: 201004, end: 201405
  6. POTASSIUM CHLORIDE. [Concomitant]
     Active Substance: POTASSIUM CHLORIDE
     Indication: HYPOKALAEMIC SYNDROME
     Dosage: UNK
     Dates: start: 2006
  7. NIFEDIPINE. [Concomitant]
     Active Substance: NIFEDIPINE
     Indication: HYPERTENSION
     Dosage: UNK
     Dates: start: 2006

REACTIONS (10)
  - Angina unstable [Not Recovered/Not Resolved]
  - Arthritis [Not Recovered/Not Resolved]
  - Myocardial infarction [Unknown]
  - Hypokalaemia [Not Recovered/Not Resolved]
  - Bursitis [Unknown]
  - Weight increased [Not Recovered/Not Resolved]
  - Sleep apnoea syndrome [Unknown]
  - Deep vein thrombosis [Unknown]
  - Coronary bypass thrombosis [Unknown]
  - Spondylitis [Not Recovered/Not Resolved]

NARRATIVE: CASE EVENT DATE: 2010
